FAERS Safety Report 10143684 (Version 2)
Quarter: 2014Q2

REPORT INFORMATION
  Report Type: Spontaneous
  Country: US (occurrence: US)
  Receive Date: 20140430
  Receipt Date: 20140516
  Transmission Date: 20141212
  Serious: No
  Sender: FDA-Public Use
  Company Number: US-PFIZER INC-2014116520

PATIENT
  Age: 56 Year
  Sex: Female

DRUGS (2)
  1. AROMASIN [Suspect]
     Indication: BREAST CANCER STAGE I
     Dosage: 25 MG, 1X/DAY
     Route: 048
     Dates: start: 201211
  2. AROMASIN [Suspect]
     Indication: ADJUVANT THERAPY

REACTIONS (1)
  - Photosensitivity reaction [Unknown]
